FAERS Safety Report 17527532 (Version 1)
Quarter: 2020Q1

REPORT INFORMATION
  Report Type: Report from Study
  Country: CA (occurrence: CA)
  Receive Date: 20200311
  Receipt Date: 20200311
  Transmission Date: 20200409
  Serious: Yes (Death, Hospitalization)
  Sender: FDA-Public Use
  Company Number: NVSC2019CA016710

PATIENT
  Age: 66 Year
  Sex: Male

DRUGS (2)
  1. SANDOSTATIN LAR DEPOT [Suspect]
     Active Substance: OCTREOTIDE ACETATE
     Indication: METASTASIS
     Dosage: 30 MG, Q3W
     Route: 030
     Dates: start: 20190801
  2. SANDOSTATIN LAR DEPOT [Suspect]
     Active Substance: OCTREOTIDE ACETATE
     Indication: CARCINOID TUMOUR
     Dosage: 60 MG, QMO
     Route: 030

REACTIONS (12)
  - Malaise [Unknown]
  - Heart rate increased [Unknown]
  - Eating disorder [Unknown]
  - Drug ineffective [Unknown]
  - Asthenia [Unknown]
  - Abdominal discomfort [Unknown]
  - Myocardial infarction [Fatal]
  - Blood urine present [Unknown]
  - Carcinoid tumour [Unknown]
  - Hypotension [Unknown]
  - Malignant neoplasm progression [Unknown]
  - Inappropriate schedule of product administration [Unknown]

NARRATIVE: CASE EVENT DATE: 20190926
